FAERS Safety Report 16498565 (Version 2)
Quarter: 2019Q4

REPORT INFORMATION
  Report Type: Spontaneous
  Country: IT (occurrence: IT)
  Receive Date: 20190629
  Receipt Date: 20191009
  Transmission Date: 20200122
  Serious: Yes (Hospitalization, Other)
  Sender: FDA-Public Use
  Company Number: IT-AUROBINDO-AUR-APL-2019-036445

PATIENT
  Age: 37 Year
  Sex: Female

DRUGS (2)
  1. OKITASK [Suspect]
     Active Substance: KETOPROFEN LYSINE
     Indication: OROPHARYNGEAL PAIN
     Dosage: 1 DOSAGE FORM
     Route: 048
     Dates: start: 20180203, end: 20180208
  2. PARACETAMOL [Suspect]
     Active Substance: ACETAMINOPHEN
     Indication: PYREXIA
     Dosage: 1 DOSAGE FORM, AS NECESSARY
     Route: 048
     Dates: start: 20180203, end: 20180211

REACTIONS (3)
  - Erythema multiforme [Recovering/Resolving]
  - Pruritus [Recovering/Resolving]
  - Transaminases increased [Recovering/Resolving]

NARRATIVE: CASE EVENT DATE: 20180208
